FAERS Safety Report 6910108-4 (Version None)
Quarter: 2010Q3

REPORT INFORMATION
  Report Type: 
  Country: None (occurrence: None)
  Receive Date: 20100806
  Receipt Date: 20100723
  Transmission Date: 20110219
  Serious: No
  Sender: FDA-Public Use
  Company Number: US-TEVA-243051USA

PATIENT
  Sex: Male

DRUGS (1)
  1. ALBUTEROL SULFATE AUTOHALER [Suspect]
     Indication: RESPIRATORY DISORDER
     Route: 055
     Dates: start: 20100514, end: 20100515

REACTIONS (4)
  - CONTUSION [None]
  - MOUTH INJURY [None]
  - RESTLESSNESS [None]
  - TOOTH INJURY [None]
